FAERS Safety Report 14397974 (Version 1)
Quarter: 2018Q1

REPORT INFORMATION
  Report Type: Spontaneous
  Country: US (occurrence: US)
  Receive Date: 20180116
  Receipt Date: 20180116
  Transmission Date: 20180509
  Serious: No
  Sender: FDA-Public Use
  Company Number: US-ALLERGAN-1771076US

PATIENT
  Age: 58 Year
  Sex: Female

DRUGS (3)
  1. BOTOX COSMETIC [Suspect]
     Active Substance: ONABOTULINUMTOXINA
     Indication: SKIN WRINKLING
     Dosage: UNK UNK, SINGLE
     Route: 030
     Dates: start: 20171207, end: 20171207
  2. BOTOX COSMETIC [Suspect]
     Active Substance: ONABOTULINUMTOXINA
     Indication: SKIN WRINKLING
     Dosage: 3.4 UNITS, SINGLE
     Route: 030
     Dates: start: 20171207, end: 20171207
  3. BOTOX COSMETIC [Suspect]
     Active Substance: ONABOTULINUMTOXINA
     Indication: SKIN WRINKLING
     Dosage: 3.4 UNITS, SINGLE
     Route: 030
     Dates: start: 20171207, end: 20171207

REACTIONS (4)
  - Panic reaction [Unknown]
  - Accidental exposure to product [Unknown]
  - Off label use [Unknown]
  - Eye irritation [Not Recovered/Not Resolved]

NARRATIVE: CASE EVENT DATE: 20171207
